FAERS Safety Report 24398210 (Version 2)
Quarter: 2024Q4

REPORT INFORMATION
  Report Type: Spontaneous
  Country: US (occurrence: US)
  Receive Date: 20241004
  Receipt Date: 20241021
  Transmission Date: 20250115
  Serious: Yes (Other)
  Sender: MERCK
  Company Number: US-CUBIST PHARMACEUTICALS, INC.-2008S1000076

PATIENT
  Age: 19 Day
  Weight: 3.1 kg

DRUGS (7)
  1. CUBICIN [Suspect]
     Active Substance: DAPTOMYCIN
     Indication: Staphylococcal infection
  2. PROSTAGLANDIN E1 [Concomitant]
     Active Substance: ALPROSTADIL
     Dosage: UNK UNK, UNK
  3. VANCOMYCIN [Concomitant]
     Active Substance: VANCOMYCIN
     Dosage: UNK UNK, UNK
  4. CEFEPIME [Concomitant]
     Active Substance: CEFEPIME HYDROCHLORIDE
     Dosage: UNK UNK, UNK
  5. GENTAMICIN [Concomitant]
     Active Substance: GENTAMICIN
     Dosage: UNK UNK, UNK
  6. RIFAMPIN [Concomitant]
     Active Substance: RIFAMPIN
     Dosage: UNK UNK, UNK
  7. LINEZOLID [Concomitant]
     Active Substance: LINEZOLID
     Dosage: UNK UNK, UNK

REACTIONS (2)
  - Aortic aneurysm [Recovered/Resolved]
  - Drug ineffective for unapproved indication [Recovered/Resolved]
